FAERS Safety Report 6473306-2 (Version None)
Quarter: 2009Q4

REPORT INFORMATION
  Report Type: 
  Country: None (occurrence: None)
  Receive Date: 20091204
  Receipt Date: 20081021
  Transmission Date: 20100525
  Serious: Yes (Hospitalization)
  Sender: FDA-Public Use
  Company Number: BE-ELI_LILLY_AND_COMPANY-BE200808003736

PATIENT
  Sex: Male
  Weight: 67 kg

DRUGS (9)
  1. PLACEBO [Suspect]
     Indication: NON-SMALL CELL LUNG CANCER
     Dosage: 1125 MG, DAILY (1/D)
     Route: 048
     Dates: start: 20080729
  2. PEMETREXED [Suspect]
     Indication: NON-SMALL CELL LUNG CANCER
     Dosage: 400 MG/M2, D8 EVERY 21 DAYS
     Route: 042
     Dates: start: 20080805
  3. CISPLATIN [Suspect]
     Indication: NON-SMALL CELL LUNG CANCER
     Dosage: 75 MG/M2, D1 + D8 EVERY 21 DAYS
     Route: 042
     Dates: start: 20080805
  4. FOLIC ACID [Concomitant]
     Indication: SUPPLEMENTATION THERAPY
     Dosage: 0.2 MG, DAILY (1/D)
     Route: 048
     Dates: start: 20080728, end: 20080819
  5. VITAMIN B-12 [Concomitant]
     Indication: SUPPLEMENTATION THERAPY
     Dosage: 1 MG, UNKNOWN
     Route: 065
     Dates: start: 20080728, end: 20080728
  6. DAKTARIN /BEL/ [Concomitant]
     Indication: STOMATITIS
     Dosage: UNK UNK, AS NEEDED
     Dates: start: 20080812
  7. MEDROL [Concomitant]
     Dosage: 2X 24 MG, UNKNOWN
     Route: 048
     Dates: start: 20080804, end: 20080806
  8. MEDROL [Concomitant]
     Dosage: 16 MG, 2/D
     Route: 048
     Dates: start: 20080807, end: 20080808
  9. SOLU-MEDROL [Concomitant]
     Dosage: 80 MG, DAILY (1/D)
     Route: 042
     Dates: start: 20080805, end: 20080805

REACTIONS (2)
  - CANDIDIASIS [None]
  - DUODENAL ULCER [None]
